FAERS Safety Report 5387589-3 (Version None)
Quarter: 2007Q3

REPORT INFORMATION
  Report Type: 
  Country: None (occurrence: None)
  Receive Date: 20070711
  Receipt Date: 20070629
  Transmission Date: 20080115
  Serious: Yes (Death)
  Sender: FDA-Public Use
  Company Number: 2007-01382

PATIENT
  Age: 64 Year
  Sex: Female

DRUGS (3)
  1. VELCADE [Suspect]
     Indication: MULTIPLE MYELOMA
     Dosage: 2.00 MG
     Dates: start: 20070312, end: 20070315
  2. DEXAMETHASONE TAB [Concomitant]
  3. NEXIUM [Concomitant]

REACTIONS (4)
  - HAEMATEMESIS [None]
  - MULTIPLE MYELOMA [None]
  - SUDDEN DEATH [None]
  - TERMINAL STATE [None]
